FAERS Safety Report 24970903 (Version 1)
Quarter: 2025Q1

REPORT INFORMATION
  Report Type: Spontaneous
  Country: US (occurrence: US)
  Receive Date: 20250214
  Receipt Date: 20250214
  Transmission Date: 20250408
  Serious: No
  Sender: IPSEN BIOPHARMACEUTICALS, INC.
  Company Number: US-IPSEN Group, Research and Development-2024-27007

PATIENT
  Age: 67 Year
  Sex: Male
  Weight: 99 kg

DRUGS (8)
  1. TAZVERIK [Suspect]
     Active Substance: TAZEMETOSTAT HYDROBROMIDE
     Indication: Soft tissue sarcoma
     Dosage: 800 MG TWICE PER DAY
     Route: 048
     Dates: start: 20241003
  2. CALCIUM [Concomitant]
     Active Substance: CALCIUM
  3. MAGNESIUM MALATE [Concomitant]
     Active Substance: MAGNESIUM MALATE
  4. NAPROXEN [Concomitant]
     Active Substance: NAPROXEN
  5. TYLENOL [Concomitant]
     Active Substance: ACETAMINOPHEN
  6. VITAMIN B12 [Concomitant]
     Active Substance: CYANOCOBALAMIN
  7. VITAMIN C [Concomitant]
     Active Substance: ASCORBIC ACID
  8. VITAMIN D [Concomitant]
     Active Substance: VITAMIN D NOS

REACTIONS (2)
  - Somnolence [Recovering/Resolving]
  - Product dose omission issue [Unknown]
